FAERS Safety Report 9470268 (Version 1)
Quarter: 2013Q3

REPORT INFORMATION
  Report Type: Spontaneous
  Country: US (occurrence: US)
  Receive Date: 20130822
  Receipt Date: 20130822
  Transmission Date: 20140515
  Serious: No
  Sender: FDA-Public Use
  Company Number: US-SANOFI-AVENTIS-2013SA062432

PATIENT
  Age: 78 Year
  Sex: Female

DRUGS (2)
  1. MULTAQ [Suspect]
     Dosage: TAKEN FROM-TWO WEEKS AGO
     Route: 065
  2. AMBRISENTAN [Suspect]
     Indication: COR PULMONALE CHRONIC
     Route: 048
     Dates: start: 20121116

REACTIONS (2)
  - Feeling abnormal [Unknown]
  - Fluid retention [Unknown]
